FAERS Safety Report 8255706-3 (Version None)
Quarter: 2012Q2

REPORT INFORMATION
  Report Type: 
  Country: None (occurrence: None)
  Receive Date: 20120403
  Receipt Date: 20120403
  Transmission Date: 20120825
  Serious: Yes (Death)
  Sender: FDA-Public Use
  Company Number: None

PATIENT
  Sex: Female
  Weight: 19.504 kg

DRUGS (3)
  1. DELSYM [Suspect]
     Indication: COUGH
  2. ZYRTEC [Concomitant]
     Indication: LACRIMATION INCREASED
  3. ZYRTEC [Concomitant]
     Indication: RHINORRHOEA

REACTIONS (3)
  - TOXICITY TO VARIOUS AGENTS [None]
  - INCORRECT DOSE ADMINISTERED [None]
  - ACCIDENTAL DRUG INTAKE BY CHILD [None]
